FAERS Safety Report 21967509 (Version 1)
Quarter: 2023Q1

REPORT INFORMATION
  Report Type: Report from Study
  Country: US (occurrence: US)
  Receive Date: 20230208
  Receipt Date: 20230208
  Transmission Date: 20230418
  Serious: Yes (Disabling)
  Sender: FDA-Public Use
  Company Number: US-MYLANLABS-2022M1035782

PATIENT
  Sex: Female
  Weight: 97.52 kg

DRUGS (1)
  1. SERTRALINE [Suspect]
     Active Substance: SERTRALINE HYDROCHLORIDE
     Indication: Product used for unknown indication
     Dosage: UNK
     Route: 065

REACTIONS (4)
  - Emotional disorder [Unknown]
  - Feeling abnormal [Unknown]
  - Depression [Unknown]
  - Drug ineffective [Unknown]
